FAERS Safety Report 8469325-7 (Version None)
Quarter: 2012Q2

REPORT INFORMATION
  Report Type: 
  Country: None (occurrence: None)
  Receive Date: 20120626
  Receipt Date: 20120614
  Transmission Date: 20120825
  Serious: No
  Sender: FDA-Public Use
  Company Number: US-ASTRAZENECA-2012SE39996

PATIENT
  Age: 83 Year
  Sex: Female
  Weight: 76.2 kg

DRUGS (4)
  1. ARIMIDEX [Suspect]
     Indication: BREAST CANCER
     Route: 048
  2. PRAVACHOL [Concomitant]
     Indication: BLOOD CHOLESTEROL
  3. BENICAR [Concomitant]
     Indication: BLOOD PRESSURE
  4. SYNTHROID [Concomitant]

REACTIONS (6)
  - BLOOD PRESSURE ABNORMAL [None]
  - ARTHRITIS [None]
  - BLOOD CHOLESTEROL ABNORMAL [None]
  - MYALGIA [None]
  - LACTOSE INTOLERANCE [None]
  - WEIGHT INCREASED [None]
